FAERS Safety Report 9862969 (Version 3)
Quarter: 2014Q2

REPORT INFORMATION
  Report Type: Report from Study
  Country: TW (occurrence: TW)
  Receive Date: 20140203
  Receipt Date: 20140529
  Transmission Date: 20141212
  Serious: Yes (Hospitalization, Other)
  Sender: FDA-Public Use
  Company Number: PHHY2014TW010719

PATIENT
  Age: 80 Year
  Sex: Male
  Weight: 60 kg

DRUGS (47)
  1. AMN107 [Suspect]
     Indication: CHRONIC MYELOID LEUKAEMIA
     Dosage: 600 MG, QD
     Route: 048
     Dates: start: 20110929, end: 20140420
  2. ESTAZOLAM [Concomitant]
     Indication: DYSTHYMIC DISORDER
  3. SENNOSIDE [Concomitant]
     Indication: GASTROINTESTINAL DISORDER
     Dates: end: 20120812
  4. CALCIUM FOLINATE [Concomitant]
     Indication: DYSTHYMIC DISORDER
  5. INDAPAMIDE [Concomitant]
     Indication: MYOCARDIAL ISCHAEMIA
     Dates: start: 20111125
  6. MEPENZOLATE BROMIDE [Concomitant]
     Indication: MYOCARDIAL ISCHAEMIA
     Dates: start: 20110915, end: 20111027
  7. DIPHENHYDRAMINE [Concomitant]
     Indication: TRANSFUSION
     Dates: start: 20111013, end: 20111013
  8. DIPHENHYDRAMINE [Concomitant]
     Indication: PACKED RED BLOOD CELL TRANSFUSION
  9. DEXAMETHASONE [Concomitant]
     Indication: TRANSFUSION
     Dates: start: 20111013, end: 20111013
  10. DEXAMETHASONE [Concomitant]
     Indication: PACKED RED BLOOD CELL TRANSFUSION
  11. DESLORATADINE [Concomitant]
     Indication: COUGH
     Dates: start: 20111124, end: 20111212
  12. CONSRINE [Concomitant]
     Indication: COUGH
     Dates: start: 20111124, end: 20111201
  13. CONSRINE [Concomitant]
     Dates: start: 20111222, end: 20111229
  14. CONSRINE [Concomitant]
     Dates: start: 20120216, end: 20120223
  15. CONSRINE [Concomitant]
     Dates: start: 20120315, end: 20120325
  16. CONSRINE [Concomitant]
     Dates: start: 20120410, end: 20120507
  17. CONSRINE [Concomitant]
     Dates: start: 20120510, end: 20120517
  18. CONSRINE [Concomitant]
     Dates: start: 20120607, end: 20120614
  19. CONSRINE [Concomitant]
     Dates: start: 20120705, end: 20120712
  20. CONSRINE [Concomitant]
     Dates: start: 20120802, end: 20120809
  21. CONSRINE [Concomitant]
     Dates: start: 20120830, end: 20120906
  22. CONSRINE [Concomitant]
     Dates: start: 20120927, end: 20121004
  23. CONSRINE [Concomitant]
     Dates: start: 20121025, end: 20121102
  24. FUROSEMIDE [Concomitant]
     Indication: CARDIAC FAILURE CONGESTIVE
     Dates: start: 20120121, end: 20120128
  25. FUROSEMIDE [Concomitant]
     Dates: start: 20120204, end: 20120325
  26. ISOSORBIDE DINITRATE [Concomitant]
     Indication: CARDIAC FAILURE CONGESTIVE
     Dates: start: 20120204
  27. DIGOXIN [Concomitant]
     Indication: MYOCARDIAL ISCHAEMIA
     Dates: start: 20120119, end: 20120721
  28. DIGOXIN [Concomitant]
     Indication: CARDIAC FAILURE CHRONIC
     Dates: start: 20120927
  29. FLUVASTATIN [Concomitant]
     Indication: HYPERLIPIDAEMIA
     Dates: start: 20120216, end: 20120316
  30. FLUVASTATIN [Concomitant]
     Dates: start: 20120802, end: 20120830
  31. CELECOXIB [Concomitant]
     Indication: OSTEOARTHRITIS
     Dates: start: 20120315, end: 20120412
  32. CANDESARTAN [Concomitant]
     Indication: CARDIAC FAILURE CONGESTIVE
     Dates: start: 20120324, end: 20120909
  33. CHLORHEXIDINE [Concomitant]
     Indication: COUGH
     Dates: start: 20120412, end: 20120415
  34. CHLORHEXIDINE [Concomitant]
     Dates: start: 20120510, end: 20120517
  35. BROMAZEPAM [Concomitant]
     Indication: DEPRESSION
     Dates: start: 20120802
  36. CONCOR [Concomitant]
     Indication: COUGH
     Dates: start: 20120811
  37. RAMIPRIL [Concomitant]
     Indication: CARDIAC FAILURE CONGESTIVE
     Dates: start: 20120908
  38. FOLIROMIN [Concomitant]
     Dates: start: 20121025
  39. BROWN MIXTURE                      /01682301/ [Concomitant]
     Indication: COUGH
     Dates: start: 20121025, end: 20121102
  40. TETRACYCLINE [Concomitant]
     Indication: COUGH
     Dates: start: 20111222, end: 20111229
  41. AMIODARON - 1 A PHARMA [Concomitant]
     Indication: COUGH
     Dates: start: 20120119, end: 20120227
  42. BISOPROLOL [Concomitant]
     Indication: CARDIAC FAILURE CONGESTIVE
     Dates: start: 20120811, end: 20121105
  43. NICORANDIL [Concomitant]
     Indication: CARDIAC FAILURE CONGESTIVE
     Dates: start: 20110707, end: 20110901
  44. OTILONIUM BROMIDE [Concomitant]
     Indication: GASTROINTESTINAL DISORDER
     Dates: start: 20110820, end: 20110827
  45. DIMETHICONE [Concomitant]
     Indication: GASTROINTESTINAL DISORDER
     Dates: start: 20110820, end: 20110827
  46. CIMETIDINE [Concomitant]
     Indication: GASTROINTESTINAL DISORDER
     Dates: start: 20110820, end: 20110827
  47. BETAHISTANE [Concomitant]
     Indication: VERTEBROBASILAR INSUFFICIENCY
     Dates: start: 20111212, end: 20111219

REACTIONS (31)
  - Acute pulmonary oedema [Not Recovered/Not Resolved]
  - Acute respiratory failure [Recovered/Resolved]
  - Sepsis [Recovered/Resolved]
  - Pneumonia [Recovered/Resolved]
  - Angina pectoris [Recovered/Resolved]
  - Renal failure chronic [Recovered/Resolved]
  - Hyperlipidaemia [Recovered/Resolved]
  - Pulmonary oedema [Recovered/Resolved]
  - Cardiac failure congestive [Recovered/Resolved]
  - Atrial fibrillation [Recovered/Resolved]
  - Oesophageal ulcer [Recovered/Resolved]
  - Pyrexia [Recovered/Resolved]
  - Haematochezia [Recovered/Resolved]
  - Dyspnoea [Recovered/Resolved]
  - Oedema [Recovered/Resolved]
  - Dyspnoea exertional [Recovered/Resolved]
  - Sputum discoloured [Recovered/Resolved]
  - Haemoptysis [Recovered/Resolved]
  - Coronary artery disease [Recovered/Resolved]
  - Tricuspid valve incompetence [Recovered/Resolved]
  - Blood pressure systolic increased [Recovered/Resolved]
  - Rales [Recovered/Resolved]
  - Wheezing [Recovered/Resolved]
  - Chronic obstructive pulmonary disease [Recovered/Resolved]
  - Pancytopenia [Recovered/Resolved]
  - Vascular dementia [Unknown]
  - Hyperkalaemia [Unknown]
  - Constipation [Unknown]
  - Glomerulonephritis chronic [Unknown]
  - Chest discomfort [Unknown]
  - Cough [Unknown]
